FAERS Safety Report 19650608 (Version 1)
Quarter: 2021Q3

REPORT INFORMATION
  Report Type: Spontaneous
  Country: US (occurrence: US)
  Receive Date: 20210803
  Receipt Date: 20210803
  Transmission Date: 20211014
  Serious: Yes (Other)
  Sender: FDA-Public Use
  Company Number: None

PATIENT
  Age: 49 Year
  Sex: Female

DRUGS (9)
  1. ATROPINE. [Concomitant]
     Active Substance: ATROPINE
     Dates: start: 20210723
  2. FLUOROURACIL. [Concomitant]
     Active Substance: FLUOROURACIL
     Dates: start: 20210723
  3. PALONOSETRON. [Concomitant]
     Active Substance: PALONOSETRON HYDROCHLORIDE
     Dates: start: 20210723
  4. OXALIPLATIN. [Concomitant]
     Active Substance: OXALIPLATIN
     Dates: start: 20210723
  5. IRINOTECAN [Suspect]
     Active Substance: IRINOTECAN
     Indication: BENIGN PANCREATIC NEOPLASM
     Dosage: ?          OTHER FREQUENCY:Q14D;??
     Route: 042
     Dates: start: 20210723
  6. DEXAMETHASONE. [Concomitant]
     Active Substance: DEXAMETHASONE
     Dates: start: 20210723
  7. IRINOTECAN [Suspect]
     Active Substance: IRINOTECAN
     Indication: BENIGN PANCREATIC NEOPLASM
     Dosage: ?          OTHER FREQUENCY:Q14D;?
     Route: 042
     Dates: start: 20210723
  8. FOSAPREPITANT [Concomitant]
     Active Substance: FOSAPREPITANT
     Dates: start: 20210723
  9. LEUCOVORIN. [Concomitant]
     Active Substance: LEUCOVORIN
     Dates: start: 20210723

REACTIONS (4)
  - Anxiety [None]
  - Hypoaesthesia oral [None]
  - Nausea [None]
  - Tremor [None]

NARRATIVE: CASE EVENT DATE: 20210723
